FAERS Safety Report 5306186-9 (Version None)
Quarter: 2007Q2

REPORT INFORMATION
  Report Type: 
  Country: None (occurrence: None)
  Receive Date: 20070416
  Receipt Date: 20070402
  Transmission Date: 20071010
  Serious: Yes (Hospitalization)
  Sender: FDA-Public Use
  Company Number: 2007RR-06688

PATIENT
  Age: 61 Year
  Sex: Female

DRUGS (5)
  1. FLUCONAZOLE [Suspect]
     Indication: SYSTEMIC CANDIDA
     Dosage: 200 MG, QD
  2. MITOXANTRONE [Suspect]
     Indication: ACUTE MYELOID LEUKAEMIA
  3. GLYBURIDE [Concomitant]
  4. LEVOTHYROXINE SODIUM [Concomitant]
  5. CANDESARTAN CILEXETIL [Concomitant]

REACTIONS (1)
  - TORSADE DE POINTES [None]
